FAERS Safety Report 24322680 (Version 1)
Quarter: 2024Q3

REPORT INFORMATION
  Report Type: Spontaneous
  Country: DK (occurrence: DK)
  Receive Date: 20240916
  Receipt Date: 20240916
  Transmission Date: 20241017
  Serious: Yes (Other)
  Sender: MYLAN
  Company Number: DK-MYLANLABS-2024M1082291

PATIENT
  Age: 16 Year

DRUGS (5)
  1. BUPRENORPHINE [Interacting]
     Active Substance: BUPRENORPHINE
     Indication: Product used for unknown indication
     Dosage: RECEIVED LOW DOSE; 0.4-2MG IN FIVE STEPS DURING THE FIRST 24H
     Route: 065
  2. ACETAMINOPHEN [Interacting]
     Active Substance: ACETAMINOPHEN
     Indication: Product used for unknown indication
     Dosage: 225 MILLIGRAM {EXPIRATION DATE (22E/11 25)}
     Route: 048
  3. TAPENTADOL [Interacting]
     Active Substance: TAPENTADOL
     Indication: Product used for unknown indication
     Dosage: RECEIVED THROUGH TAMOLL X TABLET 225MG
     Route: 048
  4. CARISOPRODOL [Interacting]
     Active Substance: CARISOPRODOL
     Indication: Product used for unknown indication
     Dosage: RECEIVED THROUGH TAMOLL X TABLET 225MG
     Route: 048
  5. OXYCODONE [Concomitant]
     Active Substance: OXYCODONE
     Indication: Product used for unknown indication
     Dosage: UNK
     Route: 065

REACTIONS (5)
  - Drug interaction [Recovering/Resolving]
  - Therapeutic product effect decreased [Recovering/Resolving]
  - Rash [Recovering/Resolving]
  - Chest pain [Recovering/Resolving]
  - Somnolence [Recovering/Resolving]
